FAERS Safety Report 7488921-7 (Version None)
Quarter: 2011Q2

REPORT INFORMATION
  Report Type: 
  Country: None (occurrence: None)
  Receive Date: 20110518
  Receipt Date: 20110506
  Transmission Date: 20111010
  Serious: Yes (Other)
  Sender: FDA-Public Use
  Company Number: DE-UCBSA-032508

PATIENT

DRUGS (1)
  1. VIMPAT [Suspect]
     Indication: STATUS EPILEPTICUS

REACTIONS (1)
  - STATUS EPILEPTICUS [None]
